FAERS Safety Report 4502196-X (Version None)
Quarter: 2004Q4

REPORT INFORMATION
  Report Type: 
  Country: None (occurrence: None)
  Receive Date: 20041116
  Receipt Date: 20041111
  Transmission Date: 20050328
  Serious: Yes (Other)
  Sender: FDA-Public Use
  Company Number: GR-ROCHE-386178

PATIENT
  Sex: Female
  Weight: 0.7 kg

DRUGS (1)
  1. XENICAL [Suspect]
     Route: 048
     Dates: end: 20041115

REACTIONS (2)
  - BLOOD ALKALINE PHOSPHATASE INCREASED [None]
  - BLOOD CALCIUM DECREASED [None]
